FAERS Safety Report 17272515 (Version 2)
Quarter: 2020Q1

REPORT INFORMATION
  Report Type: Spontaneous
  Country: JP (occurrence: JP)
  Receive Date: 20200115
  Receipt Date: 20200302
  Transmission Date: 20200409
  Serious: Yes (Hospitalization)
  Sender: FDA-Public Use
  Company Number: JP-BAYER-2020-006602

PATIENT
  Age: 47 Year
  Sex: Female
  Weight: 48.2 kg

DRUGS (1)
  1. MIRENA [Suspect]
     Active Substance: LEVONORGESTREL
     Indication: MENORRHAGIA
     Dosage: 20 ?G PER DAY, CONTINUOUSLY
     Route: 015
     Dates: start: 201607, end: 201907

REACTIONS (2)
  - Metrorrhagia [Recovering/Resolving]
  - Uterine cancer [Recovering/Resolving]

NARRATIVE: CASE EVENT DATE: 201811
